FAERS Safety Report 5751815-9 (Version None)
Quarter: 2008Q2

REPORT INFORMATION
  Report Type: 
  Country: None (occurrence: None)
  Receive Date: 20080529
  Receipt Date: 20080520
  Transmission Date: 20081010
  Serious: Yes (Other)
  Sender: FDA-Public Use
  Company Number: PHHY2008FR08545

PATIENT

DRUGS (1)
  1. EXJADE [Suspect]
     Route: 048

REACTIONS (1)
  - OSTEONECROSIS [None]
